FAERS Safety Report 21870408 (Version 2)
Quarter: 2023Q1

REPORT INFORMATION
  Report Type: Spontaneous
  Country: US (occurrence: US)
  Receive Date: 20230117
  Receipt Date: 20230119
  Transmission Date: 20230418
  Serious: Yes (Other)
  Sender: FDA-Public Use
  Company Number: US-ABBVIE-4272637

PATIENT
  Age: 77 Year
  Sex: Female
  Weight: 67.585 kg

DRUGS (10)
  1. HUMIRA [Suspect]
     Active Substance: ADALIMUMAB
     Indication: Rheumatoid arthritis
     Route: 058
     Dates: start: 201912, end: 20230113
  2. HUMIRA [Suspect]
     Active Substance: ADALIMUMAB
     Route: 058
  3. CHLOROTHIAZIDE [Concomitant]
     Active Substance: CHLOROTHIAZIDE
     Indication: Urinary tract infection
  4. NITROFURANTOIN MONO [Concomitant]
     Active Substance: NITROFURANTOIN\NITROFURANTOIN MONOHYDRATE
     Indication: Urinary tract infection
  5. CEPHALEXIN [Concomitant]
     Active Substance: CEPHALEXIN
     Indication: Urinary tract infection
  6. HUMULIN NOS [Concomitant]
     Active Substance: INSULIN HUMAN
     Indication: Diabetes mellitus
  7. SIMVASTATIN [Concomitant]
     Active Substance: SIMVASTATIN
     Indication: Blood cholesterol increased
  8. CARVEDILOL [Concomitant]
     Active Substance: CARVEDILOL
     Indication: Cardiac disorder
  9. PHENAZOPYRIDINE [Concomitant]
     Active Substance: PHENAZOPYRIDINE
     Indication: Urinary tract infection
  10. LOSARTAN [Concomitant]
     Active Substance: LOSARTAN
     Indication: Hypertension

REACTIONS (5)
  - Intervertebral disc protrusion [Recovering/Resolving]
  - Urinary tract infection [Recovering/Resolving]
  - Gait inability [Recovering/Resolving]
  - Fall [Recovered/Resolved]
  - Burning sensation [Recovering/Resolving]

NARRATIVE: CASE EVENT DATE: 20191201
